FAERS Safety Report 9855652 (Version 1)
Quarter: 2014Q1

REPORT INFORMATION
  Report Type: Spontaneous
  Country: US (occurrence: None)
  Receive Date: 20140128
  Receipt Date: 20140128
  Transmission Date: 20141002
  Serious: Yes (Death, Other)
  Sender: FDA-Public Use
  Company Number: CO-KP-US-2014-007

PATIENT
  Sex: 0

DRUGS (1)
  1. CLONIDINE (CLONIDINE) [Suspect]

REACTIONS (2)
  - Accidental overdose [None]
  - Accidental exposure to product by child [None]
